FAERS Safety Report 4489346-9 (Version None)
Quarter: 2004Q4

REPORT INFORMATION
  Report Type: 
  Country: None (occurrence: None)
  Receive Date: 20041029
  Receipt Date: 20041020
  Transmission Date: 20050328
  Serious: Yes (Death)
  Sender: FDA-Public Use
  Company Number: US-MERCK-0410USA03228

PATIENT
  Age: 41 Year
  Sex: Male

DRUGS (14)
  1. VIOXX [Suspect]
     Indication: ARTHROPATHY
     Route: 048
     Dates: start: 20000614, end: 20040316
  2. VIOXX [Suspect]
     Indication: ARTHRITIS
     Route: 048
     Dates: start: 20000614, end: 20040316
  3. PRILOSEC [Concomitant]
     Route: 065
  4. VASOTEC [Concomitant]
     Route: 065
  5. NORVASC [Concomitant]
     Route: 065
  6. ZOCOR [Concomitant]
     Route: 065
  7. LEVAQUIN [Concomitant]
     Route: 065
  8. PAXIL [Concomitant]
     Route: 065
  9. SINGULAIR [Concomitant]
     Route: 065
  10. SOMA [Concomitant]
     Route: 065
  11. XANAX [Concomitant]
     Route: 065
  12. LORTAB [Concomitant]
     Route: 065
  13. CODEINE [Concomitant]
     Route: 065
  14. [THERAPY UNSPECIFIED] [Concomitant]
     Route: 065

REACTIONS (4)
  - CARDIOVASCULAR DISORDER [None]
  - DYSPNOEA [None]
  - FEELING ABNORMAL [None]
  - PAIN [None]
